FAERS Safety Report 12978325 (Version 1)
Quarter: 2016Q4

REPORT INFORMATION
  Report Type: Spontaneous
  Country: US (occurrence: US)
  Receive Date: 20161128
  Receipt Date: 20161128
  Transmission Date: 20170207
  Serious: No
  Sender: FDA-Public Use
  Company Number: US-PFIZER INC-2016543459

PATIENT
  Age: 66 Year
  Sex: Female

DRUGS (1)
  1. EFFEXOR [Suspect]
     Active Substance: VENLAFAXINE HYDROCHLORIDE
     Dosage: 112 MG, UNK

REACTIONS (6)
  - Drug hypersensitivity [Unknown]
  - Poor quality sleep [Unknown]
  - Dyskinesia [Unknown]
  - Drug prescribing error [Unknown]
  - Hypertension [Unknown]
  - Restless legs syndrome [Unknown]
